FAERS Safety Report 9572168 (Version 1)
Quarter: 2013Q4

REPORT INFORMATION
  Report Type: Spontaneous
  Country: US (occurrence: US)
  Receive Date: 20131001
  Receipt Date: 20131001
  Transmission Date: 20140711
  Serious: No
  Sender: FDA-Public Use
  Company Number: US-BIOGENIDEC-2013BI067710

PATIENT
  Age: 56 Year
  Sex: Male

DRUGS (2)
  1. TECFIDERA [Suspect]
     Indication: MULTIPLE SCLEROSIS
     Route: 048
     Dates: start: 20130701, end: 20130707
  2. TECFIDERA [Suspect]
     Indication: MULTIPLE SCLEROSIS
     Route: 048
     Dates: start: 20130708

REACTIONS (13)
  - Influenza like illness [Unknown]
  - Pyrexia [Recovered/Resolved]
  - Nausea [Unknown]
  - Hyperhidrosis [Unknown]
  - Dyspnoea [Not Recovered/Not Resolved]
  - Insomnia [Unknown]
  - Abdominal pain lower [Unknown]
  - Sneezing [Unknown]
  - Ear pain [Recovered/Resolved]
  - Choking sensation [Recovered/Resolved]
  - Sensory disturbance [Recovered/Resolved]
  - Tremor [Recovered/Resolved]
  - Gait disturbance [Recovered/Resolved]
